FAERS Safety Report 14528897 (Version 1)
Quarter: 2018Q1

REPORT INFORMATION
  Report Type: Spontaneous
  Country: US (occurrence: US)
  Receive Date: 20180213
  Receipt Date: 20180213
  Transmission Date: 20180509
  Serious: No
  Sender: FDA-Public Use
  Company Number: None

PATIENT
  Sex: Female

DRUGS (3)
  1. IBRANCE [Suspect]
     Active Substance: PALBOCICLIB
     Indication: BREAST CANCER
     Dosage: 75MG DAILY FOR 21 DAYS OF 28 DAY CYCLE BY MOUTH
     Route: 048
     Dates: start: 20170815
  2. IBRANCE [Suspect]
     Active Substance: PALBOCICLIB
     Indication: METASTASES TO BONE
     Dosage: 75MG DAILY FOR 21 DAYS OF 28 DAY CYCLE BY MOUTH
     Route: 048
     Dates: start: 20170815
  3. IBRANCE [Suspect]
     Active Substance: PALBOCICLIB
     Indication: METASTASES TO LYMPH NODES
     Dosage: 75MG DAILY FOR 21 DAYS OF 28 DAY CYCLE BY MOUTH
     Route: 048
     Dates: start: 20170815

REACTIONS (2)
  - Oral pain [None]
  - Diarrhoea [None]
